FAERS Safety Report 10608268 (Version 5)
Quarter: 2018Q2

REPORT INFORMATION
  Report Type: Report from Study
  Country: US (occurrence: US)
  Receive Date: 20141125
  Receipt Date: 20180629
  Transmission Date: 20180711
  Serious: Yes (Other)
  Sender: FDA-Public Use
  Company Number: US-ASTELLAS-2014US018155

PATIENT
  Age: 43 Year
  Sex: Male

DRUGS (2)
  1. TACROLIMUS. [Suspect]
     Active Substance: TACROLIMUS
     Indication: TRANSPLANT
  2. TACROLIMUS. [Suspect]
     Active Substance: TACROLIMUS
     Indication: TRANSPLANT REJECTION
     Dosage: 3 MG (2 MG IN AM AND 1 MG IN PM), ONCE DAILY
     Route: 048
     Dates: start: 20040118

REACTIONS (8)
  - Neoplasm malignant [Not Recovered/Not Resolved]
  - Neuropathy peripheral [Unknown]
  - Vision blurred [Not Recovered/Not Resolved]
  - Synovial cyst [Unknown]
  - Incisional hernia [Not Recovered/Not Resolved]
  - Cyst [Not Recovered/Not Resolved]
  - Skin papilloma [Not Recovered/Not Resolved]
  - Lower limb fracture [Unknown]

NARRATIVE: CASE EVENT DATE: 200406
